FAERS Safety Report 6959642-1 (Version None)
Quarter: 2010Q3

REPORT INFORMATION
  Report Type: 
  Country: None (occurrence: None)
  Receive Date: 20100827
  Receipt Date: 20100817
  Transmission Date: 20110219
  Serious: Yes (Hospitalization)
  Sender: FDA-Public Use
  Company Number: FRP10000912

PATIENT
  Age: 74 Year
  Sex: Female

DRUGS (11)
  1. ACTONEL [Suspect]
     Dosage: 35 MG, 1/WEEK, ORAL
     Route: 048
  2. PREVISCAN (FLUINDIONE) TABLET, 20MG [Suspect]
     Dosage: ORAL
     Route: 048
  3. METOJECT /00113801/ (METHOTREXATE) [Suspect]
     Dosage: 10 MG, 1/WEEK, SUBCUTANEOUS
     Route: 058
     Dates: start: 20080901
  4. RITUXAN [Suspect]
     Dosage: 1000 MG, 2 CD/MONTH, IV NOS
     Route: 042
     Dates: start: 20090901, end: 20091201
  5. ZELITREX /01269701/ (VALACICLOVIR) [Suspect]
     Dosage: ORAL
     Route: 048
     Dates: start: 20100601, end: 20100601
  6. MORPHINE SULFATE [Suspect]
     Dosage: 60 MG, 2/DAY, ORAL
     Route: 048
     Dates: start: 20100201, end: 20100601
  7. MORPHINE SULFATE [Suspect]
     Dosage: ORAL
     Route: 048
  8. PREDNISONE TAB [Suspect]
     Dosage: 10 MG, 1/DAY, ORAL
     Route: 048
  9. NEXIUM [Suspect]
     Dosage: 40 MG, 1/DAY, ORAL
     Route: 048
  10. LASILIX /000032601/ (FUROSEMIDE) [Suspect]
     Dosage: 20 MG, 1/DAY, ORAL
     Route: 048
  11. TRAMADOL HCL [Suspect]
     Dosage: 200 MG, 1/DAY, ORAL
     Route: 048

REACTIONS (7)
  - ALVEOLITIS [None]
  - ASTHENIA [None]
  - BRONCHIOLITIS [None]
  - COUGH [None]
  - DYSPNOEA [None]
  - INTERSTITIAL LUNG DISEASE [None]
  - PYREXIA [None]
